FAERS Safety Report 6118083-X (Version None)
Quarter: 2009Q1

REPORT INFORMATION
  Report Type: 
  Country: None (occurrence: None)
  Receive Date: 20090314
  Receipt Date: 20090205
  Transmission Date: 20090719
  Serious: No
  Sender: FDA-Public Use
  Company Number: US-ABBOTT-09P-163-0502609-00

PATIENT
  Sex: Female
  Weight: 104.42 kg

DRUGS (4)
  1. HUMIRA [Suspect]
     Indication: PSORIASIS
     Dosage: THE PATIENT HAS ALWAYS BEEN ON WEEKLY DOSING
     Route: 058
     Dates: start: 20090101
  2. TOPROL-XL [Concomitant]
     Indication: HYPERTENSION
     Dosage: UNKNOWN
  3. VASOTEC [Concomitant]
     Indication: HYPERTENSION
     Dosage: UNKNOWN
  4. HYDROCHLOROTHIAZIDE [Concomitant]
     Indication: HYPERTENSION
     Dosage: UNKNOWN

REACTIONS (1)
  - INCORRECT DOSE ADMINISTERED [None]
